FAERS Safety Report 25607847 (Version 1)
Quarter: 2025Q3

REPORT INFORMATION
  Report Type: Spontaneous
  Country: US (occurrence: US)
  Receive Date: 20250725
  Receipt Date: 20250725
  Transmission Date: 20251021
  Serious: Yes (Life-Threatening, Other)
  Sender: GE HEALTHCARE
  Company Number: US-GE HEALTHCARE-2025CSU009574

PATIENT
  Age: 66 Year
  Sex: Male

DRUGS (3)
  1. OMNIPAQUE [Suspect]
     Active Substance: IOHEXOL
     Indication: X-ray
     Route: 050
  2. OMNIPAQUE [Suspect]
     Active Substance: IOHEXOL
     Indication: Oesophagogastroduodenoscopy
  3. OMNIPAQUE [Suspect]
     Active Substance: IOHEXOL
     Indication: Stent placement

REACTIONS (5)
  - Bronchospasm [Unknown]
  - Tachycardia [Unknown]
  - Tachypnoea [Unknown]
  - Chest discomfort [Unknown]
  - Hypotension [Unknown]
